FAERS Safety Report 7418758-6 (Version None)
Quarter: 2011Q2

REPORT INFORMATION
  Report Type: 
  Country: None (occurrence: None)
  Receive Date: 20110415
  Receipt Date: 20110407
  Transmission Date: 20111010
  Serious: No
  Sender: FDA-Public Use
  Company Number: US-PFIZER INC-2010180975

PATIENT
  Sex: Female
  Weight: 116.55 kg

DRUGS (7)
  1. RELISTOR [Suspect]
     Indication: OVARIAN CANCER
     Dosage: 12 MG, 1X/DAY
     Dates: start: 20110210
  2. HYDROMORPHONE [Concomitant]
     Indication: PAIN
     Dosage: 8 MG, UNK
  3. SOMA [Concomitant]
     Dosage: UNK
  4. LANTUS [Concomitant]
     Indication: DIABETES MELLITUS
     Dosage: UNK
  5. CHEMOTHERAPY NOS [Suspect]
     Indication: OVARIAN CANCER
  6. MORPHINE [Concomitant]
     Dosage: 30 MG, UNK
  7. PHENERGAN [Concomitant]
     Indication: NAUSEA
     Dosage: UNK

REACTIONS (5)
  - NAUSEA [None]
  - FLATULENCE [None]
  - DRUG INEFFECTIVE [None]
  - VOMITING [None]
  - PAIN [None]
